FAERS Safety Report 17230056 (Version 1)
Quarter: 2020Q1

REPORT INFORMATION
  Report Type: Report from Study
  Country: US (occurrence: US)
  Receive Date: 20200103
  Receipt Date: 20200103
  Transmission Date: 20200409
  Serious: No
  Sender: FDA-Public Use
  Company Number: US-IPSEN BIOPHARMACEUTICALS, INC.-2020-00022

PATIENT
  Sex: Male
  Weight: 97.5 kg

DRUGS (2)
  1. ZYRTEC [Concomitant]
     Active Substance: CETIRIZINE HYDROCHLORIDE
     Indication: BLOOD PRESSURE MEASUREMENT
  2. SOMATULINE DEPOT [Suspect]
     Active Substance: LANREOTIDE ACETATE
     Indication: CARCINOID TUMOUR
     Dosage: NOT REPORTED
     Dates: start: 201702

REACTIONS (11)
  - Bone pain [Unknown]
  - Pain [Unknown]
  - Injection site mass [Unknown]
  - Fatigue [Unknown]
  - Flatulence [Unknown]
  - Hypertension [Unknown]
  - Asthenia [Unknown]
  - Memory impairment [Unknown]
  - Cold sweat [Unknown]
  - Dyspnoea [Unknown]
  - Diarrhoea [Unknown]
